FAERS Safety Report 15288447 (Version 1)
Quarter: 2018Q3

REPORT INFORMATION
  Report Type: Spontaneous
  Country: US (occurrence: US)
  Receive Date: 20180817
  Receipt Date: 20180817
  Transmission Date: 20181010
  Serious: No
  Sender: FDA-Public Use
  Company Number: PHEH2018US033616

PATIENT
  Sex: Female

DRUGS (2)
  1. CALCIUM [Concomitant]
     Active Substance: CALCIUM
     Indication: PRODUCT USED FOR UNKNOWN INDICATION
     Dosage: UNK
     Route: 065
  2. RECLAST [Suspect]
     Active Substance: ZOLEDRONIC ACID
     Indication: PRODUCT USED FOR UNKNOWN INDICATION
     Dosage: UNK
     Route: 065

REACTIONS (9)
  - Fibromyalgia [Unknown]
  - Nerve injury [Unknown]
  - Blood cholesterol increased [Unknown]
  - Visual impairment [Unknown]
  - Burning sensation [Not Recovered/Not Resolved]
  - Tooth loss [Unknown]
  - Hot flush [Unknown]
  - Pain [Unknown]
  - Pain in extremity [Unknown]
